FAERS Safety Report 4375606-9 (Version None)
Quarter: 2004Q2

REPORT INFORMATION
  Report Type: 
  Country: None (occurrence: None)
  Receive Date: 20040610
  Receipt Date: 20040604
  Transmission Date: 20050107
  Serious: Yes (Hospitalization)
  Sender: FDA-Public Use
  Company Number: FR-MERCK-0406FRA00019

PATIENT
  Age: 42 Year
  Sex: Female

DRUGS (3)
  1. AMIODARONE HYDROCHLORIDE [Suspect]
     Route: 048
     Dates: start: 20040227, end: 20040410
  2. PRIMAXIN [Suspect]
     Indication: ENDOCARDITIS
     Route: 041
     Dates: start: 20040317, end: 20040331
  3. MINOCYCLINE [Suspect]
     Route: 048
     Dates: start: 20040401, end: 20040407

REACTIONS (2)
  - ERYTHEMA [None]
  - MELANODERMIA [None]
